FAERS Safety Report 13820177 (Version 1)
Quarter: 2017Q3

REPORT INFORMATION
  Report Type: Spontaneous
  Country: BR (occurrence: BR)
  Receive Date: 20170801
  Receipt Date: 20170801
  Transmission Date: 20171127
  Serious: Yes (Other)
  Sender: FDA-Public Use
  Company Number: BR-PFIZER INC-2017283198

PATIENT
  Sex: Female

DRUGS (5)
  1. GLUCOSAMINE + CHONDROITIN /01430901/ [Concomitant]
     Dosage: UNK
     Dates: start: 201705
  2. PREMARIN [Suspect]
     Active Substance: ESTROGENS, CONJUGATED
     Indication: HORMONE THERAPY
     Dosage: 1 DF, DAILY
     Dates: end: 201706
  3. VITA E /00110502/ [Concomitant]
     Dosage: UNK
  4. LINSEED OIL [Concomitant]
     Active Substance: LINSEED OIL
     Dosage: UNK
  5. OMEGA 3 /01333901/ [Concomitant]
     Active Substance: FISH OIL\TOCOPHEROL
     Dosage: UNK

REACTIONS (10)
  - Foot deformity [Recovering/Resolving]
  - Glaucoma [Recovered/Resolved]
  - Hyperhidrosis [Not Recovered/Not Resolved]
  - Dysstasia [Recovering/Resolving]
  - Anger [Recovered/Resolved]
  - Headache [Recovering/Resolving]
  - Arthropathy [Not Recovered/Not Resolved]
  - Pain in extremity [Recovered/Resolved]
  - Feeling abnormal [Recovered/Resolved]
  - Intentional product misuse [Recovered/Resolved]

NARRATIVE: CASE EVENT DATE: 2013
